FAERS Safety Report 12411034 (Version 1)
Quarter: 2016Q2

REPORT INFORMATION
  Report Type: Spontaneous
  Country: IT (occurrence: IT)
  Receive Date: 20160527
  Receipt Date: 20160527
  Transmission Date: 20160815
  Serious: Yes (Hospitalization)
  Sender: FDA-Public Use
  Company Number: IT-MEDA-2016050089

PATIENT
  Age: 55 Year
  Sex: Female

DRUGS (3)
  1. ITRACONAZOLE. [Suspect]
     Active Substance: ITRACONAZOLE
     Indication: CANDIDA INFECTION
     Dates: start: 20160309, end: 20160318
  2. BENTELAN [Concomitant]
     Active Substance: BETAMETHASONE SODIUM PHOSPHATE
     Indication: BACK PAIN
     Dates: start: 20160313, end: 20160315
  3. TORADIUR [Suspect]
     Active Substance: TORSEMIDE
     Indication: BACK PAIN
     Route: 048
     Dates: start: 20160313, end: 20160315

REACTIONS (3)
  - Angioedema [Recovering/Resolving]
  - Off label use [Recovered/Resolved]
  - Urticaria [Recovering/Resolving]

NARRATIVE: CASE EVENT DATE: 20160313
